FAERS Safety Report 15982326 (Version 1)
Quarter: 2019Q1

REPORT INFORMATION
  Report Type: Spontaneous
  Country: NO (occurrence: NO)
  Receive Date: 20190219
  Receipt Date: 20190219
  Transmission Date: 20190418
  Serious: Yes (Hospitalization)
  Sender: FDA-Public Use
  Company Number: NO-ELI_LILLY_AND_COMPANY-NO201902002971

PATIENT
  Age: 28 Year
  Sex: Male

DRUGS (1)
  1. ZYPADHERA [Suspect]
     Active Substance: OLANZAPINE PAMOATE
     Indication: SCHIZOPHRENIA
     Dosage: 300 MG, DAILY
     Route: 030

REACTIONS (6)
  - Post-injection delirium sedation syndrome [Recovering/Resolving]
  - Confusional state [Recovering/Resolving]
  - Somnolence [Recovering/Resolving]
  - Condition aggravated [Recovering/Resolving]
  - Speech disorder [Recovering/Resolving]
  - Dizziness [Recovering/Resolving]

NARRATIVE: CASE EVENT DATE: 20190122
